FAERS Safety Report 6381312-1 (Version None)
Quarter: 2009Q3

REPORT INFORMATION
  Report Type: 
  Country: None (occurrence: None)
  Receive Date: 20090929
  Receipt Date: 20090916
  Transmission Date: 20100115
  Serious: Yes (Other)
  Sender: FDA-Public Use
  Company Number: US-PFIZER INC-2009249104

PATIENT
  Sex: Male
  Weight: 77.11 kg

DRUGS (5)
  1. TIKOSYN [Suspect]
     Indication: ATRIAL FIBRILLATION
     Dosage: EVERY DAY
     Route: 048
     Dates: start: 20090717
  2. TAMSULOSIN HCL [Concomitant]
     Dosage: UNK
  3. FLUTICASONE [Concomitant]
     Indication: ASTHMA
     Dosage: UNK
  4. ALBUTEROL [Concomitant]
     Indication: ASTHMA
     Dosage: UNK
  5. TIOTROPIUM [Concomitant]
     Indication: ASTHMA
     Dosage: UNK
     Route: 009

REACTIONS (2)
  - ASTHMA [None]
  - DYSPNOEA [None]
